FAERS Safety Report 14536885 (Version 3)
Quarter: 2018Q1

REPORT INFORMATION
  Report Type: Spontaneous
  Country: US (occurrence: US)
  Receive Date: 20180215
  Receipt Date: 20180221
  Transmission Date: 20180509
  Serious: No
  Sender: FDA-Public Use
  Company Number: US-009507513-1802USA008161

PATIENT
  Sex: Female

DRUGS (2)
  1. BELSOMRA [Suspect]
     Active Substance: SUVOREXANT
     Dosage: DOSE: TWO 20 MG TABLETS TAKEN ONCE IN THE EVENING
     Route: 048
     Dates: start: 20180213
  2. BELSOMRA [Suspect]
     Active Substance: SUVOREXANT
     Dosage: 20 MG, UNK
     Dates: start: 20180212, end: 20180212

REACTIONS (4)
  - Product use issue [Unknown]
  - Insomnia [Recovered/Resolved]
  - Drug prescribing error [Unknown]
  - Prescribed overdose [Unknown]

NARRATIVE: CASE EVENT DATE: 20180212
